FAERS Safety Report 7917546-1 (Version None)
Quarter: 2011Q4

REPORT INFORMATION
  Report Type: 
  Country: None (occurrence: None)
  Receive Date: 20111114
  Receipt Date: 20111028
  Transmission Date: 20120403
  Serious: Yes (Hospitalization, Disabling)
  Sender: FDA-Public Use
  Company Number: TR-1188475

PATIENT
  Sex: Male

DRUGS (1)
  1. ALCAINE [Suspect]
     Dosage: OPHTHALMIC

REACTIONS (10)
  - ULCERATIVE KERATITIS [None]
  - CONJUNCTIVAL HYPERAEMIA [None]
  - DRUG ABUSE [None]
  - HYPOPYON [None]
  - EYE PAIN [None]
  - VISUAL ACUITY REDUCED [None]
  - LENS DISLOCATION [None]
  - VITREOUS PROLAPSE [None]
  - CORNEAL EPITHELIUM DEFECT [None]
  - CORNEAL OPACITY [None]
